FAERS Safety Report 4314715-7 (Version None)
Quarter: 2004Q1

REPORT INFORMATION
  Report Type: 
  Country: None (occurrence: None)
  Receive Date: 20040309
  Receipt Date: 20040309
  Transmission Date: 20041129
  Serious: Yes (Hospitalization)
  Sender: FDA-Public Use
  Company Number: None

PATIENT
  Age: 71 Year
  Sex: Male
  Weight: 129.09 kg

DRUGS (2)
  1. VALDECOXIB [Suspect]
     Indication: OSTEOARTHRITIS
     Dosage: 20 MG PO QD
     Route: 048
  2. ASPIRIN [Concomitant]

REACTIONS (1)
  - UPPER GASTROINTESTINAL HAEMORRHAGE [None]
